FAERS Safety Report 15452120 (Version 1)
Quarter: 2018Q4

REPORT INFORMATION
  Report Type: Spontaneous
  Country: US (occurrence: US)
  Receive Date: 20181001
  Receipt Date: 20181001
  Transmission Date: 20190204
  Serious: No
  Sender: FDA-Public Use
  Company Number: US-NEOS THERAPEUTICS, LP-2018NEO00079

PATIENT
  Age: 13 Year
  Sex: Male
  Weight: 63.49 kg

DRUGS (2)
  1. COTEMPLA XR-ODT [Suspect]
     Active Substance: METHYLPHENIDATE
     Indication: ATTENTION DEFICIT/HYPERACTIVITY DISORDER
     Dosage: 8.6 MG, 1X/DAY
     Route: 048
     Dates: start: 2018, end: 20180618
  2. COTEMPLA XR-ODT [Suspect]
     Active Substance: METHYLPHENIDATE
     Dosage: 8.6 MG, 1X/DAY
     Route: 048
     Dates: start: 20180620, end: 20180620

REACTIONS (4)
  - Abdominal pain [Recovered/Resolved]
  - Abdominal pain upper [Not Recovered/Not Resolved]
  - Diarrhoea [Recovered/Resolved]
  - Headache [Recovered/Resolved]

NARRATIVE: CASE EVENT DATE: 201806
